FAERS Safety Report 4549023-2 (Version None)
Quarter: 2005Q1

REPORT INFORMATION
  Report Type: 
  Country: None (occurrence: None)
  Receive Date: 20041227
  Receipt Date: 20041011
  Transmission Date: 20050727
  Serious: No
  Sender: FDA-Public Use
  Company Number: 04P-163-0276877-00

PATIENT
  Age: 52 Year
  Sex: Female
  Weight: 73.9363 kg

DRUGS (5)
  1. HUMIRA [Suspect]
     Indication: RHEUMATOID ARTHRITIS
     Dosage: 40 MG, 1 IN 2 WK, SUBCUTANEOUS
     Route: 058
     Dates: start: 20040701, end: 20040901
  2. ALLEGRA-D [Concomitant]
  3. LEFLUNOMIDE [Concomitant]
  4. ESOMEPRAZOLE [Concomitant]
  5. ANOVLAR [Concomitant]

REACTIONS (5)
  - ANOREXIA [None]
  - FATIGUE [None]
  - FEELING COLD [None]
  - STOMACH DISCOMFORT [None]
  - TREMOR [None]
